FAERS Safety Report 4410748-0 (Version None)
Quarter: 2004Q3

REPORT INFORMATION
  Report Type: 
  Country: None (occurrence: None)
  Receive Date: 20040726
  Receipt Date: 20040711
  Transmission Date: 20050211
  Serious: Yes (Other)
  Sender: FDA-Public Use
  Company Number: US-JNJFOC-20040703409

PATIENT
  Age: 59 Year
  Sex: Female
  Weight: 63.5036 kg

DRUGS (14)
  1. REMICADE [Suspect]
     Dosage: 400 MG, INTRAVENOUS
     Route: 042
     Dates: start: 20010101
  2. REMICADE [Suspect]
     Dosage: 400 MG, INTRAVENOUS
     Route: 042
     Dates: start: 20040201
  3. REMICADE [Suspect]
     Dosage: 400 MG, INTRAVENOUS
     Route: 042
     Dates: start: 20040708
  4. METHOTREXATE [Suspect]
  5. PROCRIT (UNSPECIFIED) ERYTHROPOIETIN [Concomitant]
  6. HEMATENIC (HEMATIN) [Concomitant]
  7. FOLIC ACID [Concomitant]
  8. LIPITOR [Concomitant]
  9. CARDIZEM LA (DILTIAZEM HYDROCHLORIDE) [Concomitant]
  10. TOPROL-XL [Concomitant]
  11. ULTRACET [Concomitant]
  12. CALTRAET CALCIUM (CALCIUM) [Concomitant]
  13. CORTISONE (CORTISONE) [Concomitant]
  14. IRON (IRON) [Concomitant]

REACTIONS (7)
  - ARTHROPATHY [None]
  - BLOOD TEST ABNORMAL [None]
  - BREAST OPERATION [None]
  - CARDIAC OPERATION [None]
  - CARPAL TUNNEL SYNDROME [None]
  - LOSS OF CONSCIOUSNESS [None]
  - PAIN [None]
